FAERS Safety Report 12354091 (Version 1)
Quarter: 2016Q2

REPORT INFORMATION
  Report Type: Spontaneous
  Country: IT (occurrence: IT)
  Receive Date: 20160511
  Receipt Date: 20160511
  Transmission Date: 20160815
  Serious: Yes (Other)
  Sender: FDA-Public Use
  Company Number: IT-ACCORD-040326

PATIENT
  Age: 58 Year
  Sex: Male

DRUGS (7)
  1. REMICADE [Suspect]
     Active Substance: INFLIXIMAB
     Indication: RHEUMATOID ARTHRITIS
     Dosage: MAH:  JANSSEN BIOLOGICS B.V.
     Route: 042
     Dates: start: 20010102
  2. DIBASE [Concomitant]
     Active Substance: CHOLECALCIFEROL
  3. ZANEDIP [Concomitant]
     Active Substance: LERCANIDIPINE HYDROCHLORIDE
  4. FOLINA [Concomitant]
     Active Substance: FOLIC ACID
  5. PANTOPRAZOLE [Concomitant]
     Active Substance: PANTOPRAZOLE SODIUM
  6. METHOTREXATE [Suspect]
     Active Substance: METHOTREXATE
     Indication: RHEUMATOID ARTHRITIS
     Route: 048
     Dates: start: 20150903
  7. TOTALIP [Concomitant]
     Active Substance: ATORVASTATIN

REACTIONS (2)
  - Tracheobronchitis [Recovered/Resolved]
  - Acute sinusitis [Recovered/Resolved]

NARRATIVE: CASE EVENT DATE: 20160107
